FAERS Safety Report 23270232 (Version 1)
Quarter: 2023Q4

REPORT INFORMATION
  Report Type: Spontaneous
  Country: US (occurrence: None)
  Receive Date: 20231207
  Receipt Date: 20231207
  Transmission Date: 20240110
  Serious: Yes (Hospitalization)
  Sender: FDA-Public Use
  Company Number: US-ROCHE-3465863

PATIENT
  Sex: Female
  Weight: 47.67 kg

DRUGS (2)
  1. ALECENSA [Suspect]
     Active Substance: ALECTINIB HYDROCHLORIDE
     Indication: Lung neoplasm malignant
     Dosage: 4 PILLS, TWICE A DAY AND THEN 3 PILLS, TWICE A DAY.
     Route: 065
  2. LASIX [Concomitant]
     Active Substance: FUROSEMIDE

REACTIONS (8)
  - Dyspnoea [Recovering/Resolving]
  - Joint swelling [Unknown]
  - Constipation [Unknown]
  - Weight increased [Unknown]
  - Pneumonia [Unknown]
  - Quality of life decreased [Unknown]
  - Thrombosis [Unknown]
  - Myocardial infarction [Unknown]
